FAERS Safety Report 23035119 (Version 1)
Quarter: 2023Q4

REPORT INFORMATION
  Report Type: Spontaneous
  Country: US (occurrence: US)
  Receive Date: 20231005
  Receipt Date: 20231005
  Transmission Date: 20240110
  Serious: No
  Sender: FDA-Public Use
  Company Number: US-Horizon-KRY-1150-2019

PATIENT

DRUGS (1)
  1. KRYSTEXXA [Suspect]
     Active Substance: PEGLOTICASE
     Indication: Gout
     Dosage: UNK
     Route: 042
     Dates: start: 201702, end: 202008

REACTIONS (3)
  - Gait disturbance [Recovered/Resolved]
  - Gout [Recovered/Resolved]
  - Adverse drug reaction [Recovered/Resolved]
